FAERS Safety Report 6768439-7 (Version None)
Quarter: 2010Q2

REPORT INFORMATION
  Report Type: 
  Country: None (occurrence: None)
  Receive Date: 20100614
  Receipt Date: 20100611
  Transmission Date: 20101027
  Serious: Yes (Life-Threatening)
  Sender: FDA-Public Use
  Company Number: JP-EISAI INC.-E2020-06844-CLI-JP

PATIENT
  Sex: Female
  Weight: 51 kg

DRUGS (14)
  1. ARICEPT [Suspect]
     Indication: DEMENTIA ALZHEIMER'S TYPE
     Route: 048
     Dates: start: 20090327, end: 20100501
  2. ARICEPT [Suspect]
     Route: 048
     Dates: start: 20100501, end: 20100528
  3. ARICEPT [Suspect]
     Route: 048
     Dates: start: 20100528, end: 20100104
  4. ARICEPT [Suspect]
     Route: 048
     Dates: start: 20100124
  5. CYANOCOBALAMIN [Suspect]
     Route: 048
     Dates: start: 20030821
  6. LOVOX [Concomitant]
     Route: 048
     Dates: start: 20020923
  7. SEROQUEL [Concomitant]
     Route: 048
     Dates: start: 20051101
  8. PARIET [Concomitant]
     Route: 048
     Dates: start: 20081225
  9. JUVELA N [Concomitant]
     Route: 048
     Dates: start: 20030821
  10. MAGLAX [Concomitant]
     Route: 048
     Dates: start: 20060413
  11. DEPAS [Concomitant]
     Route: 048
     Dates: start: 20050512
  12. PURSENNID [Concomitant]
     Route: 048
     Dates: start: 20060413
  13. CONSTAN [Concomitant]
     Route: 048
     Dates: start: 20060502
  14. LIPIDIL [Concomitant]
     Route: 048
     Dates: start: 20090619

REACTIONS (3)
  - ABDOMINAL PAIN [None]
  - OVERDOSE [None]
  - SMALL INTESTINAL PERFORATION [None]
